FAERS Safety Report 4473979-X (Version None)
Quarter: 2004Q4

REPORT INFORMATION
  Report Type: 
  Country: None (occurrence: None)
  Receive Date: 20041014
  Receipt Date: 20041007
  Transmission Date: 20050328
  Serious: Yes (Other)
  Sender: FDA-Public Use
  Company Number: PHBS2004AR13516

PATIENT
  Age: 8 Month
  Sex: Male

DRUGS (1)
  1. ZADITEN [Suspect]
     Indication: DERMATITIS ATOPIC
     Dosage: ACCORDING TO WEIGHT
     Route: 048
     Dates: start: 20040901, end: 20040901

REACTIONS (1)
  - JAUNDICE [None]
